FAERS Safety Report 9513247 (Version 1)
Quarter: 2013Q1

REPORT INFORMATION
  Report Type: Spontaneous
  Country: US (occurrence: None)
  Receive Date: 20130305
  Receipt Date: 20130305
  Transmission Date: 20140127
  Serious: Yes (Other)
  Sender: FDA-Public Use
  Company Number: 163-21880-12080290

PATIENT
  Age: 86 Year
  Sex: Female
  Weight: 70.31 kg

DRUGS (18)
  1. REVLIMID (LENALIDOMIDE) (CAPSULES) [Suspect]
     Indication: PLASMA CELL MYELOMA
     Route: 048
     Dates: start: 20120705
  2. PREDNISONE (PREDNISONE) [Concomitant]
  3. LACTULOSE (LACTULOSE) [Concomitant]
  4. DEXAMETHASONE (DEXAMETHASONE) [Concomitant]
  5. VIGAMOX (MOXIFLOXACIN HYDROCHLORIDE) [Concomitant]
  6. DUREZOL (DIFLUPREDNATE) [Concomitant]
  7. FENTANYL (FENTANYL) [Concomitant]
  8. AZITHROMYCIN (AZITHROMYCIN) [Concomitant]
  9. MIRTAZAPINE (MIRTAZAPINE) [Concomitant]
  10. SORBITOL (SORBITOL) [Concomitant]
  11. ALKERAN (MELPHALAN) [Concomitant]
  12. SPIRONOLACTONE-HCTZ (ALDACTAZIDE A) [Concomitant]
  13. OMEPRAZOLE (OMEPRAZOLE) [Concomitant]
  14. ALBUTEROL (SALBUTAMOL) [Concomitant]
  15. HYDROCODONE-ACETAMINOPHEN (VICODIN) [Concomitant]
  16. METOCLOPRAMIDE (METOCLOPRAMIDE) [Concomitant]
  17. BROMDAY (BROMFENAC SODIUM) [Concomitant]
  18. ADVAIR (SERETIDE MITE) [Concomitant]

REACTIONS (2)
  - Hypoacusis [None]
  - Dizziness [None]
